FAERS Safety Report 7248307-7 (Version None)
Quarter: 2011Q1

REPORT INFORMATION
  Report Type: 
  Country: None (occurrence: None)
  Receive Date: 20110127
  Receipt Date: 20110114
  Transmission Date: 20110831
  Serious: Yes (Other)
  Sender: FDA-Public Use
  Company Number: US-BAYER-2011-005356

PATIENT
  Sex: Female
  Weight: 83 kg

DRUGS (2)
  1. ALEVE (CAPLET) [Suspect]
     Indication: TENSION HEADACHE
  2. ALEVE (CAPLET) [Suspect]
     Indication: BACK PAIN
     Dosage: 440 MG, QD
     Route: 048
     Dates: start: 20110105, end: 20110108

REACTIONS (2)
  - ALOPECIA [None]
  - HYPOAESTHESIA [None]
